FAERS Safety Report 24625642 (Version 2)
Quarter: 2025Q1

REPORT INFORMATION
  Report Type: Spontaneous
  Country: CO (occurrence: CO)
  Receive Date: 20241115
  Receipt Date: 20250207
  Transmission Date: 20250409
  Serious: Yes (Hospitalization, Other)
  Sender: BIOMARIN
  Company Number: CO-BIOMARINAP-CO-2024-161854

PATIENT

DRUGS (3)
  1. NAGLAZYME [Suspect]
     Active Substance: GALSULFASE
     Indication: Mucopolysaccharidosis VI
     Dosage: 20 MILLIGRAM, QW
     Route: 042
     Dates: start: 20130809
  2. ALBUTEROL [Concomitant]
     Active Substance: ALBUTEROL
     Indication: Cough
     Dosage: UNK, QID
  3. ALBUTEROL [Concomitant]
     Active Substance: ALBUTEROL
     Indication: Influenza

REACTIONS (3)
  - Tympanic membrane disorder [Recovering/Resolving]
  - Otitis media chronic [Recovering/Resolving]
  - Head injury [Unknown]

NARRATIVE: CASE EVENT DATE: 20250201
